FAERS Safety Report 9854678 (Version 1)
Quarter: 2014Q1

REPORT INFORMATION
  Report Type: Report from Study
  Country: PL (occurrence: PL)
  Receive Date: 20140130
  Receipt Date: 20140130
  Transmission Date: 20141002
  Serious: Yes (Other)
  Sender: FDA-Public Use
  Company Number: PL-BRISTOL-MYERS SQUIBB COMPANY-20107959

PATIENT
  Age: 61 Year
  Sex: Male

DRUGS (9)
  1. BLINDED: IPILIMUMAB [Suspect]
     Indication: SMALL CELL LUNG CANCER
     Route: 042
     Dates: start: 20140104, end: 20140124
  2. CARBOPLATIN [Suspect]
     Indication: SMALL CELL LUNG CANCER
     Dosage: 1 DF = AUC 5.
     Route: 042
     Dates: start: 20131112, end: 20140122
  3. ETOPOSIDE [Suspect]
     Indication: SMALL CELL LUNG CANCER
     Route: 042
     Dates: start: 20131112, end: 20140124
  4. BLINDED: PLACEBO [Suspect]
     Indication: SMALL CELL LUNG CANCER
     Route: 042
     Dates: start: 20140104, end: 20140124
  5. ONDANSETRON [Concomitant]
     Dates: start: 20140122, end: 20140124
  6. BETAXOLOL [Concomitant]
     Dates: start: 2002
  7. PERINDOPRIL [Concomitant]
     Dates: start: 2002
  8. INDAPAMIDE [Concomitant]
     Dates: start: 2002
  9. TRAMADOL [Concomitant]
     Dates: start: 201310

REACTIONS (1)
  - Dyspnoea [Recovered/Resolved]
